FAERS Safety Report 10775647 (Version 2)
Quarter: 2015Q1

REPORT INFORMATION
  Report Type: Spontaneous
  Country: IT (occurrence: None)
  Receive Date: 20150205
  Receipt Date: 20150303
  Transmission Date: 20150721
  Serious: Yes (Other)
  Sender: FDA-Public Use
  Company Number: 2721547

PATIENT
  Age: 44 Year
  Sex: Female
  Weight: 82 kg

DRUGS (2)
  1. CYCLOPHOSPHAMIDE. [Suspect]
     Active Substance: CYCLOPHOSPHAMIDE
     Indication: BREAST CANCER
     Dosage: 1140 MG MILLIGRAM (CYCLICAL)?
     Route: 042
     Dates: start: 20141202, end: 20150120
  2. EPIRUBICIN HYDROCHLORIDE. [Suspect]
     Active Substance: EPIRUBICIN HYDROCHLORIDE
     Indication: BREAST CANCER
     Dosage: 170 MG MILLIGRAM (CYCLICAL)
     Route: 042
     Dates: start: 20141202, end: 20150120

REACTIONS (2)
  - Hypertransaminasaemia [None]
  - Hepatotoxicity [None]

NARRATIVE: CASE EVENT DATE: 20150102
